FAERS Safety Report 10161837 (Version 1)
Quarter: 2014Q2

REPORT INFORMATION
  Report Type: Spontaneous
  Country: US (occurrence: None)
  Receive Date: 20140508
  Receipt Date: 20140508
  Transmission Date: 20141212
  Serious: No
  Sender: FDA-Public Use
  Company Number: None

PATIENT
  Age: 76 Year
  Sex: Female

DRUGS (6)
  1. IMBRUVICA [Suspect]
     Indication: PRODUCT USED FOR UNKNOWN INDICATION
     Dosage: 140 MG  3 TABS DAILY  ORAL
     Route: 048
     Dates: start: 20140315
  2. NORVASC [Concomitant]
  3. DIOVAN [Concomitant]
  4. CARVEDILOL [Concomitant]
  5. LEVOTHYROXINE [Concomitant]
  6. ASPIRIN [Concomitant]

REACTIONS (4)
  - Heart rate irregular [None]
  - Atrial fibrillation [None]
  - Therapy cessation [None]
  - Drug dose omission [None]
